FAERS Safety Report 17128287 (Version 1)
Quarter: 2019Q4

REPORT INFORMATION
  Report Type: Spontaneous
  Country: US (occurrence: US)
  Receive Date: 20191209
  Receipt Date: 20191209
  Transmission Date: 20200122
  Serious: Yes (Other)
  Sender: FDA-Public Use
  Company Number: US-UCBSA-2017005826

PATIENT
  Sex: Male

DRUGS (6)
  1. PHENOBARBITAL. [Concomitant]
     Active Substance: PHENOBARBITAL
     Indication: EPILEPSY
  2. ONFI [Suspect]
     Active Substance: CLOBAZAM
     Indication: EPILEPSY
     Dosage: UNK
  3. SABRIL [Suspect]
     Active Substance: VIGABATRIN
     Indication: EPILEPSY
     Dosage: 2.5 ML, 2X/DAY (BID) (STRENGTH: 500 MG)
     Dates: start: 20161227
  4. KEPPRA [Suspect]
     Active Substance: LEVETIRACETAM
     Indication: EPILEPSY
     Dosage: UNK
  5. ONFI [Suspect]
     Active Substance: CLOBAZAM
     Dosage: DOSE DECREASED
  6. DIASTAT [Concomitant]
     Active Substance: DIAZEPAM
     Indication: EPILEPSY

REACTIONS (1)
  - Seizure [Unknown]
